FAERS Safety Report 8962491 (Version 1)
Quarter: 2012Q4

REPORT INFORMATION
  Report Type: 
  Country: US (occurrence: US)
  Receive Date: 20121213
  Receipt Date: 20121213
  Transmission Date: 20130627
  Serious: No
  Sender: FDA-Public Use
  Company Number: US-009507513-1212USA004586

PATIENT
  Age: 19 Year
  Sex: Female
  Weight: 62.59 kg

DRUGS (1)
  1. IMPLANON [Suspect]
     Indication: CONTRACEPTION
     Dosage: UNK, every 3 years
     Route: 059
     Dates: start: 200812

REACTIONS (4)
  - Cyst rupture [Unknown]
  - Incorrect drug administration duration [Unknown]
  - Implant site pain [Unknown]
  - Back pain [Unknown]
